FAERS Safety Report 4357283-6 (Version None)
Quarter: 2004Q2

REPORT INFORMATION
  Report Type: 
  Country: None (occurrence: None)
  Receive Date: 20040507
  Receipt Date: 20040419
  Transmission Date: 20050107
  Serious: Yes (Hospitalization, Other)
  Sender: FDA-Public Use
  Company Number: US_0404102359

PATIENT
  Age: 1 Day
  Sex: Male

DRUGS (2)
  1. HUMALOG [Suspect]
     Route: 064
     Dates: end: 20030401
  2. HUMULIN N [Suspect]
     Route: 064
     Dates: end: 20030401

REACTIONS (3)
  - COLLAPSE OF LUNG [None]
  - DRUG EXPOSURE DURING PREGNANCY [None]
  - PREMATURE BABY [None]
